FAERS Safety Report 10897670 (Version 2)
Quarter: 2015Q2

REPORT INFORMATION
  Report Type: Spontaneous
  Country: JP (occurrence: JP)
  Receive Date: 20150309
  Receipt Date: 20150402
  Transmission Date: 20150821
  Serious: Yes (Other)
  Sender: FDA-Public Use
  Company Number: JP-JNJFOC-20150301079

PATIENT

DRUGS (4)
  1. SULBACTAM-CEFOPERAZONE [Concomitant]
     Route: 065
     Dates: start: 20150222
  2. DUROTEP MT [Suspect]
     Active Substance: FENTANYL
     Indication: PAIN
     Route: 062
     Dates: start: 20150223
  3. DUROTEP MT [Suspect]
     Active Substance: FENTANYL
     Indication: PAIN
     Route: 062
     Dates: end: 20150222
  4. FLUCONAZOLE. [Interacting]
     Active Substance: FLUCONAZOLE
     Indication: DEVICE RELATED INFECTION
     Route: 048
     Dates: start: 20150222, end: 20150222

REACTIONS (4)
  - Drug interaction [Recovered/Resolved]
  - Device related infection [Unknown]
  - Feeling abnormal [Recovering/Resolving]
  - Loss of consciousness [Recovered/Resolved]

NARRATIVE: CASE EVENT DATE: 20150222
